FAERS Safety Report 7546324-0 (Version None)
Quarter: 2011Q2

REPORT INFORMATION
  Report Type: 
  Country: None (occurrence: None)
  Receive Date: 20110614
  Receipt Date: 20070508
  Transmission Date: 20111010
  Serious: Yes (Hospitalization)
  Sender: FDA-Public Use
  Company Number: PHHO2007BR07948

PATIENT
  Age: 79 Year
  Sex: Female

DRUGS (5)
  1. MONOCORDIL [Concomitant]
  2. DIOVAN [Suspect]
     Indication: HYPERTENSION
     Dosage: 320 MG
     Route: 048
  3. CLONIDINE HYDROCHLORIDE [Concomitant]
  4. ADALAT [Concomitant]
  5. FUROSEMIDE [Concomitant]

REACTIONS (4)
  - DYSPNOEA [None]
  - SPEECH DISORDER [None]
  - BLOOD GLUCOSE ABNORMAL [None]
  - COUGH [None]
